FAERS Safety Report 4901507-0 (Version None)
Quarter: 2006Q1

REPORT INFORMATION
  Report Type: 
  Country: None (occurrence: None)
  Receive Date: 20060203
  Receipt Date: 20060203
  Transmission Date: 20060701
  Serious: No
  Sender: FDA-Public Use
  Company Number: None

PATIENT
  Sex: Male

DRUGS (1)
  1. XYREM [Suspect]
     Dates: start: 20051230, end: 20060124

REACTIONS (1)
  - MYALGIA [None]
